FAERS Safety Report 8006743-5 (Version None)
Quarter: 2011Q4

REPORT INFORMATION
  Report Type: 
  Country: None (occurrence: None)
  Receive Date: 20111227
  Receipt Date: 20111219
  Transmission Date: 20120403
  Serious: Yes (Hospitalization, Other)
  Sender: FDA-Public Use
  Company Number: JP-JNJFOC-20111208306

PATIENT
  Sex: Female

DRUGS (16)
  1. DOXORUBICIN HCL [Suspect]
     Dosage: CYCLE 6
     Route: 042
  2. TOPOTECAN [Suspect]
     Dosage: CYCLE 3
     Route: 041
  3. DOXORUBICIN HCL [Suspect]
     Dosage: CYCLE 1
     Route: 042
  4. DOXORUBICIN HCL [Suspect]
     Indication: OVARIAN CANCER
     Dosage: CYCLE 2
     Route: 042
  5. DOXORUBICIN HCL [Suspect]
     Dosage: CYCLE 7: 56 MG/ BODY WAS ADMINISTERED
     Route: 042
     Dates: start: 20111124
  6. DOXORUBICIN HCL [Suspect]
     Dosage: CYCLE 4
     Route: 042
  7. TOPOTECAN [Suspect]
     Dosage: CYCLE 8: 71 MG/ BODY WAS ADMINISTERED
     Route: 041
     Dates: start: 20111129
  8. TOPOTECAN [Suspect]
     Dosage: CYCLE 7: 71 MG/ BODY WAS ADMINISTERED
     Route: 041
     Dates: start: 20111122
  9. DOXORUBICIN HCL [Suspect]
     Dosage: CYCLE 5
     Route: 042
  10. TOPOTECAN [Suspect]
     Dosage: CYCLE 2
     Route: 041
  11. TOPOTECAN [Suspect]
     Dosage: CYCLE 4
     Route: 041
  12. DOXORUBICIN HCL [Suspect]
     Dosage: CYCLE 3
     Route: 042
  13. TOPOTECAN [Suspect]
     Indication: OVARIAN CANCER
     Dosage: CYCLE 9: 71 MG/ BODY WAS ADMINISTERED
     Route: 041
     Dates: start: 20111206
  14. TOPOTECAN [Suspect]
     Dosage: CYCLE 6
     Route: 041
  15. TOPOTECAN [Suspect]
     Dosage: CYCLE 5
     Route: 041
  16. TOPOTECAN [Suspect]
     Dosage: CYCLE 1
     Route: 041

REACTIONS (1)
  - PULMONARY ALVEOLAR HAEMORRHAGE [None]
